FAERS Safety Report 15391933 (Version 4)
Quarter: 2019Q1

REPORT INFORMATION
  Report Type: Spontaneous
  Country: US (occurrence: US)
  Receive Date: 20180917
  Receipt Date: 20190205
  Transmission Date: 20190417
  Serious: No
  Sender: FDA-Public Use
  Company Number: US-PFIZER INC-2018363790

PATIENT
  Age: 68 Year
  Sex: Female
  Weight: 104.3 kg

DRUGS (12)
  1. LYRICA [Suspect]
     Active Substance: PREGABALIN
     Dosage: 200 MG, DAILY (50MG AT BREAKFAST, 50MG AT LUNCH AND 100MG AT NIGHT )
  2. LOSARTAN. [Concomitant]
     Active Substance: LOSARTAN
     Indication: HYPERTENSION
     Dosage: 100 MG, 1X/DAY
     Route: 048
  3. ATORVASTATIN [Concomitant]
     Active Substance: ATORVASTATIN
     Dosage: UNK
  4. LYRICA [Suspect]
     Active Substance: PREGABALIN
     Indication: NEUROPATHY PERIPHERAL
     Dosage: 100 MG, 1X/DAY (PM/NIGHT/ONE 100 MG LYRICA AT NIGHT TIME FOR BED)
     Route: 048
     Dates: start: 2017
  5. VITAMIN E [Concomitant]
     Active Substance: .ALPHA.-TOCOPHEROL
     Dosage: UNK
  6. LYRICA [Suspect]
     Active Substance: PREGABALIN
     Indication: PAIN IN EXTREMITY
     Dosage: 50 MG, 1X/DAY (AM/ LUNCHTIME)
     Route: 048
  7. LYRICA [Suspect]
     Active Substance: PREGABALIN
     Dosage: 50 MG, 3X/DAY (50MG AT BREAKFAST, 50MG AT LUNCH AND 50MG AT NIGHT )
  8. LYRICA [Suspect]
     Active Substance: PREGABALIN
     Dosage: 50 MG, 2X/DAY(TAKE ONE 50 MG LYRICA IN THE MORNING AND AFTERNOON)
     Route: 048
  9. VITAMIN B [Concomitant]
     Active Substance: VITAMIN B
     Dosage: UNK
  10. METOPROLOL. [Concomitant]
     Active Substance: METOPROLOL
     Indication: CARDIAC DISORDER
     Dosage: 50 MG, 1X/DAY
     Route: 048
  11. LYRICA [Suspect]
     Active Substance: PREGABALIN
     Dosage: 200 MG, DAILY [50 MG, ORALLY 4 CAPSULES A DAY]
     Route: 048
  12. ASPIRIN EXTRA [Concomitant]
     Dosage: UNK

REACTIONS (8)
  - Body height decreased [Unknown]
  - Product dose omission [Unknown]
  - Drug ineffective [Recovering/Resolving]
  - Impaired work ability [Unknown]
  - Somnolence [Unknown]
  - Oedema peripheral [Unknown]
  - Insomnia [Not Recovered/Not Resolved]
  - Product dispensing error [Unknown]
